FAERS Safety Report 9688628 (Version 1)
Quarter: 2013Q4

REPORT INFORMATION
  Report Type: Spontaneous
  Country: US (occurrence: US)
  Receive Date: 20131114
  Receipt Date: 20131114
  Transmission Date: 20140711
  Serious: Yes (Other)
  Sender: FDA-Public Use
  Company Number: US-GLAXOSMITHKLINE-A1049027A

PATIENT
  Age: 27 Year
  Sex: Female

DRUGS (2)
  1. TARGET NTS CLEAR 21 MG [Suspect]
     Indication: SMOKING CESSATION THERAPY
     Route: 062
     Dates: start: 20130930
  2. COFFEE [Suspect]

REACTIONS (7)
  - Myocardial infarction [Recovered/Resolved]
  - Heart rate increased [Recovered/Resolved]
  - Anxiety [Recovered/Resolved]
  - Dyspnoea [Recovered/Resolved]
  - Discomfort [Recovered/Resolved]
  - Abnormal dreams [Recovered/Resolved]
  - Drug interaction [Recovered/Resolved]
